FAERS Safety Report 8511175-7 (Version None)
Quarter: 2012Q3

REPORT INFORMATION
  Report Type: 
  Country: None (occurrence: None)
  Receive Date: 20120716
  Receipt Date: 20120703
  Transmission Date: 20120928
  Serious: No
  Sender: FDA-Public Use
  Company Number: US-009507513-1207USA001366

PATIENT

DRUGS (5)
  1. RIBAVIRIN [Suspect]
     Dosage: 200 MG, UNK
  2. LEXAPRO [Concomitant]
     Dosage: 20 MG, UNK
  3. PRILOSEC [Concomitant]
     Dosage: 20 MG, UNK
  4. PEG-INTRON [Suspect]
     Dosage: 120 MICROGRAM, QW
     Route: 058
  5. OMEGA-3 MARINE TRIGLYCERIDES [Concomitant]

REACTIONS (5)
  - RED BLOOD CELL COUNT DECREASED [None]
  - HAEMATOCRIT DECREASED [None]
  - ARTHRALGIA [None]
  - DYSPNOEA EXERTIONAL [None]
  - HAEMOGLOBIN DECREASED [None]
